FAERS Safety Report 4653098-X (Version None)
Quarter: 2005Q2

REPORT INFORMATION
  Report Type: 
  Country: None (occurrence: None)
  Receive Date: 20050503
  Receipt Date: 20050420
  Transmission Date: 20051028
  Serious: Yes (Hospitalization)
  Sender: FDA-Public Use
  Company Number: 2005064809

PATIENT
  Sex: Female

DRUGS (2)
  1. ZYRTEC [Suspect]
     Indication: URTICARIA
     Dosage: 10 MG (10 MG, 1 IN 1 D), UNKNOWN
  2. BENADRYL [Suspect]
     Indication: ILL-DEFINED DISORDER

REACTIONS (3)
  - CONDITION AGGRAVATED [None]
  - DRUG HYPERSENSITIVITY [None]
  - URTICARIA [None]
